FAERS Safety Report 9466029 (Version 3)
Quarter: 2013Q4

REPORT INFORMATION
  Report Type: Report from Study
  Country: BR (occurrence: BR)
  Receive Date: 20130820
  Receipt Date: 20131114
  Transmission Date: 20140711
  Serious: Yes (Other)
  Sender: FDA-Public Use
  Company Number: BR-US-EMD SERONO, INC.-7231004

PATIENT
  Age: 32 Year
  Sex: Female

DRUGS (5)
  1. REBIF [Suspect]
     Indication: RELAPSING-REMITTING MULTIPLE SCLEROSIS
     Dates: start: 20110803, end: 20120208
  2. REBIF [Suspect]
     Dates: start: 20121211
  3. REBIF [Suspect]
     Dates: start: 20131104
  4. TOPIRAMATE [Concomitant]
     Indication: PRODUCT USED FOR UNKNOWN INDICATION
  5. SERTRALINE [Concomitant]
     Indication: PRODUCT USED FOR UNKNOWN INDICATION

REACTIONS (2)
  - Bipolar disorder [Not Recovered/Not Resolved]
  - Alopecia [Unknown]
